FAERS Safety Report 9850111 (Version 7)
Quarter: 2015Q4

REPORT INFORMATION
  Report Type: Spontaneous
  Country: US (occurrence: US)
  Receive Date: 20140128
  Receipt Date: 20151202
  Transmission Date: 20160305
  Serious: Yes (Hospitalization, Other)
  Sender: FDA-Public Use
  Company Number: US-009507513-1401USA008411

PATIENT
  Sex: Female
  Weight: 52.61 kg

DRUGS (11)
  1. FOSAMAX [Suspect]
     Active Substance: ALENDRONATE SODIUM
     Indication: OSTEOPOROSIS
     Dosage: UNK
     Route: 048
     Dates: start: 200003
  2. OSTEO BI FLEX TRIPLE STRENGTH (OLD FORMULA) [Concomitant]
     Dosage: 1500 MG, BID
     Route: 065
     Dates: start: 1998
  3. CALTRATE WITH VITAMIN D [Concomitant]
     Active Substance: CALCIUM CARBONATE\CHOLECALCIFEROL
     Dosage: 600 MG, BID
     Route: 065
     Dates: start: 1997
  4. ALENDRONATE SODIUM. [Suspect]
     Active Substance: ALENDRONATE SODIUM
     Indication: OSTEOPOROSIS
     Dosage: 70 MG, QW
     Route: 048
     Dates: end: 201104
  5. ALENDRONATE SODIUM. [Suspect]
     Active Substance: ALENDRONATE SODIUM
     Dosage: 70 MG, QW
     Route: 048
     Dates: start: 20100222, end: 201006
  6. ALENDRONATE SODIUM. [Suspect]
     Active Substance: ALENDRONATE SODIUM
     Indication: OSTEOPOROSIS
     Dosage: 70 MG, QW
     Route: 048
     Dates: start: 20090831
  7. ALENDRONATE SODIUM. [Suspect]
     Active Substance: ALENDRONATE SODIUM
     Indication: OSTEOPOROSIS
     Dosage: 70 MG, QW
     Route: 048
     Dates: start: 20100605, end: 201011
  8. FOSAMAX [Suspect]
     Active Substance: ALENDRONATE SODIUM
     Dosage: 70 MG, QW
     Route: 048
     Dates: start: 20020208, end: 200802
  9. ALENDRONATE SODIUM. [Suspect]
     Active Substance: ALENDRONATE SODIUM
     Indication: OSTEOPOROSIS
     Dosage: 70 MG, QW
     Route: 048
     Dates: start: 20080305, end: 201002
  10. FLAXSEED [Concomitant]
     Active Substance: FLAX SEED
     Dosage: 1200 MG, QD
     Route: 065
     Dates: start: 2000
  11. CORTICOSTEROIDS (UNSPECIFIED) [Concomitant]
     Active Substance: UNSPECIFIED INGREDIENT
     Dosage: UNK
     Route: 065
     Dates: start: 1997, end: 2010

REACTIONS (22)
  - Femur fracture [Unknown]
  - Femur fracture [Unknown]
  - Hyperparathyroidism [Unknown]
  - Femur fracture [Unknown]
  - Hypokalaemia [Recovered/Resolved]
  - Hypothyroidism [Unknown]
  - Device breakage [Unknown]
  - Osteoarthritis [Unknown]
  - Hysterectomy [Unknown]
  - Procedural nausea [Unknown]
  - Femur fracture [Unknown]
  - Anaemia postoperative [Unknown]
  - Hypertension [Unknown]
  - Scoliosis [Unknown]
  - Rib fracture [Unknown]
  - Thrombocytopenia [Recovering/Resolving]
  - Arthritis [Unknown]
  - Fracture nonunion [Unknown]
  - Left atrial dilatation [Unknown]
  - Spinal column stenosis [Unknown]
  - Postoperative fever [Recovered/Resolved]
  - Device failure [Unknown]

NARRATIVE: CASE EVENT DATE: 2004
